FAERS Safety Report 18063376 (Version 1)
Quarter: 2020Q3

REPORT INFORMATION
  Report Type: Other
  Country: BE (occurrence: BE)
  Receive Date: 20200724
  Receipt Date: 20200724
  Transmission Date: 20201103
  Serious: Yes (Disabling, Other)
  Sender: FDA-Public Use
  Company Number: BE-CELLTRION INC.-2020BE024538

PATIENT

DRUGS (1)
  1. RITUXIMAB (UNKNOWN) [Suspect]
     Active Substance: RITUXIMAB
     Indication: PRODUCT USED FOR UNKNOWN INDICATION
     Dosage: STOPPED
     Route: 065

REACTIONS (3)
  - Deafness [Not Recovered/Not Resolved]
  - Hemiparesis [Recovered/Resolved]
  - Meningitis enteroviral [Unknown]
